FAERS Safety Report 9234897 (Version 1)
Quarter: 2013Q2

REPORT INFORMATION
  Report Type: Spontaneous
  Country: US (occurrence: US)
  Receive Date: 20130416
  Receipt Date: 20130416
  Transmission Date: 20140414
  Serious: No
  Sender: FDA-Public Use
  Company Number: US-BANPHARM-20120194

PATIENT
  Age: 86 Year
  Sex: Female
  Weight: 45 kg

DRUGS (7)
  1. ALEVE LIQUID GELS 220 MG [Suspect]
     Dosage: 1 DF,  BID,
     Route: 048
     Dates: start: 201207
  2. PROTONIX [Concomitant]
  3. CARVEDILOL [Concomitant]
  4. 81 MG RITE AID GENERIC [ASPIRIN] [Concomitant]
  5. DIOVAN [Concomitant]
  6. VITAMIN D3 [Concomitant]
  7. OYSTER SHELL CALCIUM WITH VITAMIN D [Concomitant]
     Route: 048

REACTIONS (2)
  - Faeces discoloured [Recovered/Resolved]
  - Incorrect drug administration duration [Unknown]
